FAERS Safety Report 7625129-6 (Version None)
Quarter: 2011Q3

REPORT INFORMATION
  Report Type: 
  Country: None (occurrence: None)
  Receive Date: 20110721
  Receipt Date: 20090911
  Transmission Date: 20111222
  Serious: No
  Sender: FDA-Public Use
  Company Number: 2009BI029415

PATIENT
  Age: 36 Year
  Sex: Female

DRUGS (11)
  1. GEODON [Concomitant]
  2. FLUOXETINE [Concomitant]
  3. FUROSEMIDE [Concomitant]
  4. TYSABRI [Suspect]
     Route: 042
     Dates: start: 20090806, end: 20090910
  5. ZYRTEC [Concomitant]
  6. COPAXONE [Concomitant]
     Indication: MULTIPLE SCLEROSIS
  7. NAPROXEN (ALEVE) [Concomitant]
  8. MACROBID [Concomitant]
  9. BACLOFEN [Concomitant]
  10. TYSABRI [Suspect]
     Indication: MULTIPLE SCLEROSIS
     Route: 042
     Dates: start: 20050209, end: 20050209
  11. PRILOSEC [Concomitant]

REACTIONS (3)
  - HYPERSENSITIVITY [None]
  - POOR VENOUS ACCESS [None]
  - INFUSION RELATED REACTION [None]
